FAERS Safety Report 10710033 (Version 4)
Quarter: 2015Q3

REPORT INFORMATION
  Report Type: Spontaneous
  Country: US (occurrence: US)
  Receive Date: 20150114
  Receipt Date: 20150713
  Transmission Date: 20151125
  Serious: No
  Sender: FDA-Public Use
  Company Number: US-PFIZER INC-2015013487

PATIENT
  Age: 56 Year
  Sex: Female
  Weight: 129 kg

DRUGS (13)
  1. LYRICA [Suspect]
     Active Substance: PREGABALIN
     Indication: INTERVERTEBRAL DISC PROTRUSION
     Dosage: 100 MG, 3X/DAY
     Dates: start: 201412
  2. LYRICA [Suspect]
     Active Substance: PREGABALIN
     Dosage: 200 MG, UNK
  3. CLONIDINE. [Concomitant]
     Active Substance: CLONIDINE
     Dosage: 1 MG, WEEKLY
     Route: 062
     Dates: start: 201306
  4. VIVELLE-DOT [Concomitant]
     Active Substance: ESTRADIOL
     Indication: OESTROGEN REPLACEMENT THERAPY
     Dosage: UNK
     Route: 062
     Dates: start: 1993
  5. HYDROCODONE [Concomitant]
     Active Substance: HYDROCODONE
     Dosage: UNK
     Dates: start: 201405
  6. LYRICA [Suspect]
     Active Substance: PREGABALIN
     Dosage: 50 TO 75MG A DAY
  7. LYRICA [Suspect]
     Active Substance: PREGABALIN
     Indication: NEURALGIA
     Dosage: 50 MG, 3X/DAY
  8. LYRICA [Suspect]
     Active Substance: PREGABALIN
     Dosage: 150 MG, UNK
  9. LYRICA [Suspect]
     Active Substance: PREGABALIN
     Dosage: 300 MG, UNK
  10. LYRICA [Suspect]
     Active Substance: PREGABALIN
     Dosage: 25 MG, UNK
  11. LYRICA [Suspect]
     Active Substance: PREGABALIN
     Dosage: 75 MG, DAILY
  12. LYRICA [Suspect]
     Active Substance: PREGABALIN
     Dosage: 12.5 MG, UNK
  13. LISINOPRIL. [Concomitant]
     Active Substance: LISINOPRIL
     Dosage: 5 MG, UNK
     Dates: start: 2007

REACTIONS (20)
  - Pain in extremity [Unknown]
  - Pain [Unknown]
  - Crying [Unknown]
  - Arthralgia [Unknown]
  - Muscular weakness [Unknown]
  - Joint stiffness [Unknown]
  - Myalgia [Unknown]
  - Anxiety [Unknown]
  - Intentional product misuse [Not Recovered/Not Resolved]
  - Condition aggravated [Unknown]
  - Muscle rigidity [Unknown]
  - Back pain [Unknown]
  - Neuralgia [Unknown]
  - Burning sensation [Unknown]
  - Insomnia [Unknown]
  - Feeling abnormal [Unknown]
  - Gait disturbance [Unknown]
  - Drug withdrawal syndrome [Recovered/Resolved]
  - Panic reaction [Unknown]
  - Musculoskeletal stiffness [Unknown]

NARRATIVE: CASE EVENT DATE: 201412
